FAERS Safety Report 7623481-9 (Version None)
Quarter: 2011Q3

REPORT INFORMATION
  Report Type: 
  Country: None (occurrence: None)
  Receive Date: 20110719
  Receipt Date: 20110719
  Transmission Date: 20111222
  Serious: Yes (Other)
  Sender: FDA-Public Use
  Company Number: None

PATIENT
  Sex: Female
  Weight: 84.8226 kg

DRUGS (1)
  1. SULFAMETHOXAZOLE AND TRIMETHOPRIM DOUBLE STRENGTH [Suspect]
     Indication: PHARYNGITIS BACTERIAL
     Dosage: 1 PILL 2 TIMES A DAY PILL FOR 7 DAYS
     Route: 003
     Dates: start: 20110616, end: 20110619

REACTIONS (9)
  - FEELING HOT [None]
  - PRURITUS [None]
  - RASH [None]
  - AGEUSIA [None]
  - PLICATED TONGUE [None]
  - ORAL MUCOSAL EXFOLIATION [None]
  - TONGUE DISORDER [None]
  - GLOSSODYNIA [None]
  - BURNING SENSATION [None]
